FAERS Safety Report 11867135 (Version 1)
Quarter: 2015Q4

REPORT INFORMATION
  Report Type: Spontaneous
  Country: AT (occurrence: AT)
  Receive Date: 20151224
  Receipt Date: 20151224
  Transmission Date: 20160305
  Serious: Yes (Other)
  Sender: FDA-Public Use
  Company Number: PHHY2015AT164271

PATIENT
  Age: 54 Year
  Sex: Female

DRUGS (2)
  1. VORICONAZOLE. [Suspect]
     Active Substance: VORICONAZOLE
     Indication: FUNGAL INFECTION
     Dosage: 7 DAYS P.O 200 MG, BID FOR 8 WEEKS
     Route: 042
     Dates: start: 201205
  2. VORICONAZOLE. [Suspect]
     Active Substance: VORICONAZOLE
     Dosage: 200 MG, BID, 14 DAYS
     Route: 042
     Dates: start: 201211

REACTIONS (8)
  - Nausea [Unknown]
  - Pyrexia [Unknown]
  - Bronchospasm [Unknown]
  - Weight decreased [Unknown]
  - Insomnia [Unknown]
  - Cough [Unknown]
  - Vomiting [Unknown]
  - Disease progression [Unknown]
